FAERS Safety Report 8532987-X (Version None)
Quarter: 2012Q3

REPORT INFORMATION
  Report Type: 
  Country: None (occurrence: None)
  Receive Date: 20120724
  Receipt Date: 20120713
  Transmission Date: 20120928
  Serious: Yes (Hospitalization, Other)
  Sender: FDA-Public Use
  Company Number: BR-NOVOPROD-356147

PATIENT
  Sex: Male

DRUGS (3)
  1. METFORMIN HCL [Concomitant]
     Dosage: UNK
     Dates: start: 20120101
  2. VICTOZA [Suspect]
     Indication: PRODUCT USED FOR UNKNOWN INDICATION
     Dosage: UNK
     Route: 065
     Dates: start: 20110101, end: 20120501
  3. ACTOS [Concomitant]
     Dosage: UNK
     Dates: start: 20120101

REACTIONS (6)
  - PROTEINURIA [None]
  - WEIGHT DECREASED [None]
  - RENAL IMPAIRMENT [None]
  - CHEST DISCOMFORT [None]
  - BLOOD CALCIUM INCREASED [None]
  - FATIGUE [None]
